FAERS Safety Report 6030329-5 (Version None)
Quarter: 2009Q1

REPORT INFORMATION
  Report Type: 
  Country: None (occurrence: None)
  Receive Date: 20090107
  Receipt Date: 20080624
  Transmission Date: 20090719
  Serious: No
  Sender: FDA-Public Use
  Company Number: US-BAYER-200812842BCC

PATIENT
  Age: 48 Year
  Sex: Female
  Weight: 82 kg

DRUGS (4)
  1. ALEVE [Suspect]
     Indication: PAIN
     Dosage: TOTAL DAILY DOSE: 880 MG  UNIT DOSE: 220 MG
     Route: 048
  2. PRILOSEC [Concomitant]
  3. PREMPRO [Concomitant]
  4. CLARITIN [Concomitant]

REACTIONS (2)
  - ABDOMINAL DISCOMFORT [None]
  - DYSPEPSIA [None]
